FAERS Safety Report 5315170-0 (Version None)
Quarter: 2007Q2

REPORT INFORMATION
  Report Type: 
  Country: None (occurrence: None)
  Receive Date: 20070502
  Receipt Date: 20070423
  Transmission Date: 20071010
  Serious: Yes (Other)
  Sender: FDA-Public Use
  Company Number: US-PFIZER INC-2007032917

PATIENT
  Sex: Female
  Weight: 90.7 kg

DRUGS (2)
  1. ZOLOFT [Suspect]
     Indication: DEPRESSION
     Dates: start: 20070312, end: 20070410
  2. LAMICTAL [Concomitant]

REACTIONS (5)
  - DIPLOPIA [None]
  - EYE MOVEMENT DISORDER [None]
  - GAIT DISTURBANCE [None]
  - NYSTAGMUS [None]
  - VISION BLURRED [None]
